FAERS Safety Report 12971073 (Version 2)
Quarter: 2016Q4

REPORT INFORMATION
  Report Type: Spontaneous
  Country: US (occurrence: US)
  Receive Date: 20161123
  Receipt Date: 20161128
  Transmission Date: 20170207
  Serious: No
  Sender: FDA-Public Use
  Company Number: US-JAZZ-2016-US-018981

PATIENT
  Age: 55 Year
  Sex: Female

DRUGS (49)
  1. XYREM [Suspect]
     Active Substance: SODIUM OXYBATE
     Dosage: 4.25 G, BID
     Route: 048
     Dates: start: 201603
  2. FLUTICASONE [Concomitant]
     Active Substance: FLUTICASONE\FLUTICASONE PROPIONATE
  3. COENZYME Q10 [Concomitant]
     Active Substance: UBIDECARENONE
  4. GUAIFENESIN. [Concomitant]
     Active Substance: GUAIFENESIN
  5. NABUMETONE. [Concomitant]
     Active Substance: NABUMETONE
  6. VICTOZA [Concomitant]
     Active Substance: LIRAGLUTIDE
  7. DIOVAN HCT [Concomitant]
     Active Substance: HYDROCHLOROTHIAZIDE\VALSARTAN
  8. EFFEXOR [Concomitant]
     Active Substance: VENLAFAXINE HYDROCHLORIDE
  9. NORTRIPTYLINE [Concomitant]
     Active Substance: NORTRIPTYLINE
  10. SINGULAIR [Concomitant]
     Active Substance: MONTELUKAST SODIUM
  11. XYREM [Suspect]
     Active Substance: SODIUM OXYBATE
     Dosage: DOSE ADJUSTMENT
     Route: 048
     Dates: start: 200911, end: 201603
  12. MS CONTIN [Concomitant]
     Active Substance: MORPHINE SULFATE
  13. ASPIRIN                            /00002701/ [Concomitant]
     Active Substance: ASPIRIN
  14. CETIRIZINE [Concomitant]
     Active Substance: CETIRIZINE HYDROCHLORIDE
  15. GABAPENTIN. [Concomitant]
     Active Substance: GABAPENTIN
  16. TRADJENTA [Concomitant]
     Active Substance: LINAGLIPTIN
  17. PROAIR HFA [Concomitant]
     Active Substance: ALBUTEROL SULFATE
  18. QVAR [Concomitant]
     Active Substance: BECLOMETHASONE DIPROPIONATE
  19. NASACORT [Concomitant]
     Active Substance: TRIAMCINOLONE ACETONIDE
  20. OMEPRAZOLE. [Concomitant]
     Active Substance: OMEPRAZOLE
  21. RANITIDINE. [Concomitant]
     Active Substance: RANITIDINE
  22. ATORVASTATIN [Concomitant]
     Active Substance: ATORVASTATIN
  23. FISH OIL CONCENTRATE [Concomitant]
     Active Substance: FISH OIL
  24. KEPPRA [Concomitant]
     Active Substance: LEVETIRACETAM
  25. CELEBREX [Concomitant]
     Active Substance: CELECOXIB
  26. ALBUTEROL                          /00139501/ [Concomitant]
     Active Substance: ALBUTEROL
  27. DULERA [Concomitant]
     Active Substance: FORMOTEROL FUMARATE DIHYDRATE\MOMETASONE FUROATE
  28. TYLENOL EXTRA STRENGTH [Concomitant]
     Active Substance: ACETAMINOPHEN
  29. RITALIN [Concomitant]
     Active Substance: METHYLPHENIDATE HYDROCHLORIDE
  30. TEMAZEPAM. [Concomitant]
     Active Substance: TEMAZEPAM
  31. LOVENOX [Concomitant]
     Active Substance: ENOXAPARIN SODIUM
  32. FERROUS                            /00023501/ [Concomitant]
  33. REQUIP [Concomitant]
     Active Substance: ROPINIROLE HYDROCHLORIDE
  34. LASIX [Concomitant]
     Active Substance: FUROSEMIDE
  35. LISINOPRIL. [Concomitant]
     Active Substance: LISINOPRIL
  36. XYREM [Suspect]
     Active Substance: SODIUM OXYBATE
     Indication: NARCOLEPSY
     Dosage: 1.5 G, BID
     Route: 048
     Dates: start: 200910, end: 200911
  37. HYDROCHLOROTHIAZIDE. [Suspect]
     Active Substance: HYDROCHLOROTHIAZIDE
     Indication: PRODUCT USED FOR UNKNOWN INDICATION
     Dosage: UNK
     Dates: end: 201608
  38. CARVEDILOL. [Concomitant]
     Active Substance: CARVEDILOL
  39. TRAMADOL. [Concomitant]
     Active Substance: TRAMADOL
  40. PROVENTIL [Concomitant]
     Active Substance: ALBUTEROL
  41. LEVAQUIN [Concomitant]
     Active Substance: LEVOFLOXACIN
  42. MIRAPEX [Concomitant]
     Active Substance: PRAMIPEXOLE DIHYDROCHLORIDE
  43. NORVASC [Concomitant]
     Active Substance: AMLODIPINE BESYLATE
  44. VITAMINS                           /00067501/ [Concomitant]
     Active Substance: VITAMINS
  45. ALLOPURINOL. [Concomitant]
     Active Substance: ALLOPURINOL
  46. BISOPROLOL FUMERATE [Concomitant]
     Active Substance: BISOPROLOL FUMARATE
  47. ZOLOFT [Concomitant]
     Active Substance: SERTRALINE HYDROCHLORIDE
  48. CLARITIN [Concomitant]
     Active Substance: LORATADINE
  49. IRON [Concomitant]
     Active Substance: IRON

REACTIONS (5)
  - Anaemia [Unknown]
  - Restless legs syndrome [Not Recovered/Not Resolved]
  - Weight decreased [Not Recovered/Not Resolved]
  - Neuropathy peripheral [Not Recovered/Not Resolved]
  - Hypotension [Recovering/Resolving]

NARRATIVE: CASE EVENT DATE: 201603
